FAERS Safety Report 23995856 (Version 1)
Quarter: 2024Q2

REPORT INFORMATION
  Report Type: Spontaneous
  Country: US (occurrence: US)
  Receive Date: 20240620
  Receipt Date: 20240620
  Transmission Date: 20240715
  Serious: No
  Sender: FDA-Public Use
  Company Number: US-TPU-TPU-2024-00287

PATIENT
  Sex: Female

DRUGS (1)
  1. LIDOCAINE [Suspect]
     Active Substance: LIDOCAINE
     Indication: Pain in extremity
     Dosage: UP TO THREE PATCHES AT A TIME TO THE BACK OF THE LEGS

REACTIONS (1)
  - Drug ineffective for unapproved indication [Unknown]
